FAERS Safety Report 7197527-9 (Version None)
Quarter: 2010Q4

REPORT INFORMATION
  Report Type: 
  Country: None (occurrence: None)
  Receive Date: 20101227
  Receipt Date: 20101213
  Transmission Date: 20110411
  Serious: Yes (Other)
  Sender: FDA-Public Use
  Company Number: GB-RANBAXY-2010R1-40381

PATIENT
  Age: 60 Year
  Sex: Male

DRUGS (1)
  1. AMPICILLIN SODIUM/SULBACTAM SODIUM [Suspect]
     Indication: LYMPHADENOPATHY
     Dosage: UNK
     Route: 048
     Dates: start: 20101111

REACTIONS (1)
  - JAUNDICE CHOLESTATIC [None]
